FAERS Safety Report 17737279 (Version 1)
Quarter: 2020Q2

REPORT INFORMATION
  Report Type: Spontaneous
  Country: CA (occurrence: CA)
  Receive Date: 20200503
  Receipt Date: 20200503
  Transmission Date: 20200714
  Serious: Yes (Hospitalization)
  Sender: FDA-Public Use
  Company Number: CA-ROCHE-2590330

PATIENT
  Age: 65 Year
  Sex: Female

DRUGS (2)
  1. HYDROCHLOROTHIAZIDE W/ CILAZAPRIL [Suspect]
     Active Substance: CILAZAPRIL ANHYDROUS\HYDROCHLOROTHIAZIDE
     Indication: PRODUCT USED FOR UNKNOWN INDICATION
     Route: 048
  2. ESBRIET [Suspect]
     Active Substance: PIRFENIDONE
     Indication: IDIOPATHIC PULMONARY FIBROSIS
     Route: 065

REACTIONS (3)
  - Fatigue [Unknown]
  - Pain [Unknown]
  - Cholangiocarcinoma [Unknown]
